FAERS Safety Report 23932691 (Version 1)
Quarter: 2024Q2

REPORT INFORMATION
  Report Type: Report from Study
  Country: BR (occurrence: BR)
  Receive Date: 20240603
  Receipt Date: 20240603
  Transmission Date: 20240716
  Serious: Yes (Other)
  Sender: FDA-Public Use
  Company Number: BR-CELLTRION INC.-2024BR012735

PATIENT

DRUGS (2)
  1. INFLIXIMAB [Suspect]
     Active Substance: INFLIXIMAB
     Indication: Psoriatic arthropathy
     Dosage: 4 AMPOULES EVERY 2 MONTHS
     Route: 042
     Dates: start: 20221101
  2. SERTRALINE [Concomitant]
     Active Substance: SERTRALINE HYDROCHLORIDE
     Indication: Rheumatoid arthritis
     Dosage: 1 PILL A DAY  (START DATE: 3 YEARS)
     Route: 048

REACTIONS (8)
  - Psoriatic arthropathy [Unknown]
  - Symptom recurrence [Unknown]
  - Ear infection [Recovered/Resolved]
  - Chest pain [Unknown]
  - Back pain [Unknown]
  - Peripheral swelling [Unknown]
  - Arthralgia [Unknown]
  - Intentional dose omission [Unknown]

NARRATIVE: CASE EVENT DATE: 20240512
